FAERS Safety Report 6738375-0 (Version None)
Quarter: 2010Q2

REPORT INFORMATION
  Report Type: 
  Country: None (occurrence: None)
  Receive Date: 20100524
  Receipt Date: 20100514
  Transmission Date: 20101027
  Serious: Yes (Other)
  Sender: FDA-Public Use
  Company Number: DE-ELI_LILLY_AND_COMPANY-DE201005003889

PATIENT
  Age: 49 Year
  Sex: Male
  Weight: 105 kg

DRUGS (1)
  1. BYETTA [Suspect]
     Dosage: UNK, 2/D
     Route: 058
     Dates: start: 20100108, end: 20100422

REACTIONS (1)
  - PANCREATITIS [None]
